FAERS Safety Report 5895460-3 (Version None)
Quarter: 2008Q3

REPORT INFORMATION
  Report Type: 
  Country: None (occurrence: None)
  Receive Date: 20080922
  Receipt Date: 20080917
  Transmission Date: 20090109
  Serious: Yes (Death, Hospitalization)
  Sender: FDA-Public Use
  Company Number: 2008SP009837

PATIENT
  Age: 39 Year
  Sex: Male

DRUGS (7)
  1. PEG-INTRON [Suspect]
     Indication: HEPATITIS C
     Dosage: 100 MCG;QW;SC
     Route: 058
     Dates: start: 20080424, end: 20080508
  2. RAMIPRIL [Concomitant]
  3. EPOGEN [Concomitant]
  4. METOPROLOL TARTRATE [Concomitant]
  5. SEVELAMER [Concomitant]
  6. SODIUM POLYSTYRENE [Concomitant]
  7. SULFONATE [Concomitant]

REACTIONS (12)
  - ACIDOSIS [None]
  - ASTHENIA [None]
  - CARDIO-RESPIRATORY ARREST [None]
  - CONTINUOUS HAEMODIAFILTRATION [None]
  - DIPLOPIA [None]
  - HYPOTENSION [None]
  - INFLUENZA LIKE ILLNESS [None]
  - LEFT VENTRICULAR HYPERTROPHY [None]
  - PERICARDIAL EFFUSION [None]
  - RENAL COLIC [None]
  - RHABDOMYOLYSIS [None]
  - VISUAL IMPAIRMENT [None]
